FAERS Safety Report 21357081 (Version 2)
Quarter: 2022Q4

REPORT INFORMATION
  Report Type: Spontaneous
  Country: US (occurrence: US)
  Receive Date: 20220921
  Receipt Date: 20221025
  Transmission Date: 20230113
  Serious: Yes (Death, Hospitalization, Other)
  Sender: FDA-Public Use
  Company Number: US-AMGEN-USASP2022157082

PATIENT

DRUGS (2)
  1. TRASTUZUMAB [Suspect]
     Active Substance: TRASTUZUMAB
     Indication: Breast cancer
     Dosage: UNK
     Route: 065
  2. ASPIRIN [Concomitant]
     Active Substance: ASPIRIN

REACTIONS (13)
  - Death [Fatal]
  - Right ventricular ejection fraction decreased [Fatal]
  - Cardiac arrest [Fatal]
  - Ischaemic cardiomyopathy [Unknown]
  - Myocarditis [Unknown]
  - Cardiac sarcoidosis [Unknown]
  - Hypertensive cardiomyopathy [Unknown]
  - Cardiac failure [Fatal]
  - Cardiac death [Fatal]
  - Lymphoma [Unknown]
  - Right ventricular dysfunction [Unknown]
  - Left ventricular dysfunction [Unknown]
  - Ejection fraction decreased [Unknown]
